FAERS Safety Report 4562776-2 (Version None)
Quarter: 2005Q1

REPORT INFORMATION
  Report Type: 
  Country: None (occurrence: None)
  Receive Date: 20050127
  Receipt Date: 20050117
  Transmission Date: 20050727
  Serious: Yes (Other)
  Sender: FDA-Public Use
  Company Number: PHBS2005BR01007

PATIENT
  Age: 21 Year
  Sex: Female

DRUGS (1)
  1. VOLTAREN [Suspect]

REACTIONS (3)
  - APPLICATION SITE REACTION [None]
  - INJECTION SITE PAIN [None]
  - INJECTION SITE REACTION [None]
